FAERS Safety Report 25514414 (Version 1)
Quarter: 2025Q3

REPORT INFORMATION
  Report Type: Spontaneous
  Country: US (occurrence: US)
  Receive Date: 20250703
  Receipt Date: 20250703
  Transmission Date: 20251020
  Serious: No
  Sender: RADIUS PHARM
  Company Number: US-RADIUS HEALTH INC.-2025US000047

PATIENT
  Age: 71 Year
  Sex: Female

DRUGS (3)
  1. TYMLOS [Suspect]
     Active Substance: ABALOPARATIDE
     Indication: Product used for unknown indication
     Dosage: 80 MICROGRAM, DAILY
     Route: 058
     Dates: start: 20240819
  2. CALCIUM [Concomitant]
     Active Substance: CALCIUM
     Indication: Product used for unknown indication
     Dosage: UNK UNK, BID
     Route: 065
  3. CHOLECALCIFEROL [Concomitant]
     Active Substance: CHOLECALCIFEROL
     Indication: Product used for unknown indication
     Dosage: UNK, QD
     Route: 065

REACTIONS (2)
  - Injection site inflammation [Unknown]
  - Product use complaint [Unknown]

NARRATIVE: CASE EVENT DATE: 20250101
